FAERS Safety Report 15812992 (Version 1)
Quarter: 2019Q1

REPORT INFORMATION
  Report Type: Spontaneous
  Country: US (occurrence: US)
  Receive Date: 20190111
  Receipt Date: 20190111
  Transmission Date: 20190417
  Serious: Yes (Other)
  Sender: FDA-Public Use
  Company Number: US-ALLERGAN-1900688US

PATIENT

DRUGS (1)
  1. NAMZARIC [Suspect]
     Active Substance: DONEPEZIL HYDROCHLORIDE\MEMANTINE HYDROCHLORIDE
     Indication: PRODUCT USED FOR UNKNOWN INDICATION
     Dosage: 28 MG/10 MG
     Route: 065

REACTIONS (5)
  - Speech disorder [Unknown]
  - Unresponsive to stimuli [Unknown]
  - Eating disorder [Unknown]
  - Incorrect dose administered [Unknown]
  - Confusional state [Unknown]
